FAERS Safety Report 4756877-3 (Version None)
Quarter: 2005Q3

REPORT INFORMATION
  Report Type: 
  Country: None (occurrence: None)
  Receive Date: 20050830
  Receipt Date: 20050527
  Transmission Date: 20060218
  Serious: No
  Sender: FDA-Public Use
  Company Number: US-GLAXOSMITHKLINE-A0560575A

PATIENT
  Sex: Male

DRUGS (10)
  1. AVODART [Suspect]
     Indication: BENIGN PROSTATIC HYPERPLASIA
     Dosage: .5MG UNKNOWN
     Route: 048
  2. FLOMAX [Concomitant]
  3. LIPITOR [Concomitant]
  4. ZETIA [Concomitant]
  5. LOPRESSOR [Concomitant]
  6. BEXTRA [Concomitant]
  7. ASPIRIN [Concomitant]
  8. MOTRIN [Concomitant]
  9. FAMVIR [Concomitant]
  10. UNKNOWN MEDICATION [Concomitant]

REACTIONS (1)
  - RASH [None]
